FAERS Safety Report 11606801 (Version 2)
Quarter: 2015Q4

REPORT INFORMATION
  Report Type: Spontaneous
  Country: US (occurrence: US)
  Receive Date: 20151007
  Receipt Date: 20151016
  Transmission Date: 20160304
  Serious: No
  Sender: FDA-Public Use
  Company Number: US-GLAXOSMITHKLINE-US2015GSK141818

PATIENT
  Sex: Female

DRUGS (2)
  1. REQUIP XL [Suspect]
     Active Substance: ROPINIROLE HYDROCHLORIDE
     Indication: RESTLESS LEGS SYNDROME
     Dosage: 12 MG, U
     Route: 065
     Dates: start: 2005
  2. LAMICTAL [Suspect]
     Active Substance: LAMOTRIGINE
     Indication: PRODUCT USED FOR UNKNOWN INDICATION
     Dosage: 25 MG, U
     Route: 065
     Dates: start: 20110809

REACTIONS (3)
  - Fatigue [Unknown]
  - Adverse drug reaction [Unknown]
  - Dizziness [Unknown]
